FAERS Safety Report 14093036 (Version 1)
Quarter: 2017Q4

REPORT INFORMATION
  Report Type: Spontaneous
  Country: CZ (occurrence: CZ)
  Receive Date: 20171016
  Receipt Date: 20171016
  Transmission Date: 20180321
  Serious: Yes (Life-Threatening, Hospitalization, Other)
  Sender: FDA-Public Use
  Company Number: CZ-MYLANLABS-2017M1063252

PATIENT
  Age: 21 Year
  Sex: Male

DRUGS (3)
  1. STOPEX [Suspect]
     Active Substance: DEXTROMETHORPHAN HYDROBROMIDE
     Indication: INTENTIONAL PRODUCT MISUSE
     Dates: end: 20170716
  2. SERTRALINUM [Suspect]
     Active Substance: SERTRALINE HYDROCHLORIDE
     Indication: PRODUCT USED FOR UNKNOWN INDICATION
     Dates: end: 20170716
  3. IBUPROFEN. [Suspect]
     Active Substance: IBUPROFEN
     Indication: PRODUCT USED FOR UNKNOWN INDICATION
     Dates: end: 20170716

REACTIONS (6)
  - Overdose [Unknown]
  - Dysarthria [Unknown]
  - Somnolence [Unknown]
  - Intentional overdose [Unknown]
  - Intentional product misuse [Unknown]
  - Suicide attempt [Unknown]

NARRATIVE: CASE EVENT DATE: 20170716
